FAERS Safety Report 18398563 (Version 1)
Quarter: 2020Q4

REPORT INFORMATION
  Report Type: Spontaneous
  Country: ES (occurrence: ES)
  Receive Date: 20201019
  Receipt Date: 20201019
  Transmission Date: 20210114
  Serious: Yes (Other)
  Sender: FDA-Public Use
  Company Number: ES-RISING PHARMA HOLDINGS, INC.-2020RIS000249

PATIENT
  Age: 39 Year
  Sex: Male

DRUGS (1)
  1. AZATHIOPRINE. [Suspect]
     Active Substance: AZATHIOPRINE
     Indication: CROHN^S DISEASE
     Dosage: 2.5 MILLIGRAM/KILOGRAM
     Route: 065
     Dates: start: 201702

REACTIONS (2)
  - Sialoadenitis [Recovering/Resolving]
  - Product use in unapproved indication [Unknown]
